FAERS Safety Report 19785151 (Version 1)
Quarter: 2021Q3

REPORT INFORMATION
  Report Type: Spontaneous
  Country: US (occurrence: US)
  Receive Date: 20210903
  Receipt Date: 20210903
  Transmission Date: 20211014
  Serious: Yes (Death)
  Sender: FDA-Public Use
  Company Number: None

PATIENT
  Age: 49 Year
  Sex: Female

DRUGS (5)
  1. POTASSIUM CHLORIDE 20 [Concomitant]
  2. DAPSONE 100MG [Concomitant]
  3. VALACYCLOVIR 500 [Concomitant]
  4. REVLIMID [Suspect]
     Active Substance: LENALIDOMIDE
     Indication: PLASMA CELL MYELOMA
     Route: 048
     Dates: start: 20210720, end: 20210826
  5. LANSOPRAZOLE 15MG [Concomitant]
     Active Substance: LANSOPRAZOLE

REACTIONS (2)
  - COVID-19 [None]
  - Disease complication [None]

NARRATIVE: CASE EVENT DATE: 20210903
